FAERS Safety Report 15401552 (Version 5)
Quarter: 2019Q2

REPORT INFORMATION
  Report Type: Spontaneous
  Country: US (occurrence: US)
  Receive Date: 20180919
  Receipt Date: 20190618
  Transmission Date: 20190711
  Serious: Yes (Other)
  Sender: FDA-Public Use
  Company Number: US-PFIZER INC-2018377420

PATIENT
  Age: 59 Year
  Sex: Male

DRUGS (2)
  1. LYRICA [Suspect]
     Active Substance: PREGABALIN
     Indication: MUSCULOSKELETAL CHEST PAIN
     Dosage: 225 MG, 3X/DAY (TAKE 1 CAPSULE, BY MOUTH 3 TIMES DAILY FOR 30 DAYS MAX DAILY AMOUNT 675 MG)
     Route: 048
  2. LYRICA [Suspect]
     Active Substance: PREGABALIN
     Indication: PAIN
     Dosage: 225 MG, 3X/DAY [TAKE 1 CAPSULE (225 MG TOTAL) BY MOUTH 3 TIMES DAILY]
     Route: 048

REACTIONS (2)
  - Prescribed overdose [Unknown]
  - Suicidal ideation [Unknown]
